FAERS Safety Report 19888354 (Version 1)
Quarter: 2021Q3

REPORT INFORMATION
  Report Type: Spontaneous
  Country: AU (occurrence: AU)
  Receive Date: 20210927
  Receipt Date: 20210927
  Transmission Date: 20211014
  Serious: Yes (Other)
  Sender: FDA-Public Use
  Company Number: AU-MYLANLABS-2021M1065462

PATIENT
  Sex: Male

DRUGS (2)
  1. CLOZARIL [Suspect]
     Active Substance: CLOZAPINE
     Dosage: RESTARTED
     Route: 048
  2. CLOZARIL [Suspect]
     Active Substance: CLOZAPINE
     Indication: SCHIZOPHRENIA
     Dosage: 425 MILLIGRAM
     Route: 048
     Dates: start: 20140902

REACTIONS (4)
  - Treatment noncompliance [Unknown]
  - Neutrophil count increased [Unknown]
  - Lower respiratory tract infection [Unknown]
  - White blood cell count increased [Unknown]
